FAERS Safety Report 8309695-3 (Version None)
Quarter: 2012Q2

REPORT INFORMATION
  Report Type: 
  Country: None (occurrence: None)
  Receive Date: 20120425
  Receipt Date: 20120416
  Transmission Date: 20120825
  Serious: Yes (Other)
  Sender: FDA-Public Use
  Company Number: US-JNJFOC-20120400828

PATIENT
  Sex: Female
  Weight: 58.97 kg

DRUGS (3)
  1. DURAGESIC-100 [Suspect]
     Indication: PRODUCT USED FOR UNKNOWN INDICATION
     Route: 062
  2. DURAGESIC-100 [Suspect]
     Indication: PAIN
     Route: 062
     Dates: start: 20070101, end: 20120213
  3. DURAGESIC-100 [Suspect]
     Route: 062
     Dates: start: 20120213

REACTIONS (6)
  - INCORRECT DOSE ADMINISTERED [None]
  - PAIN [None]
  - EATING DISORDER [None]
  - SURGERY [None]
  - DYSPNOEA [None]
  - PRODUCT QUALITY ISSUE [None]
